FAERS Safety Report 4945052-5 (Version None)
Quarter: 2006Q1

REPORT INFORMATION
  Report Type: 
  Country: None (occurrence: None)
  Receive Date: 20060117
  Receipt Date: 20050815
  Transmission Date: 20060701
  Serious: No
  Sender: FDA-Public Use
  Company Number: FEI2005-2113

PATIENT
  Age: 34 Year
  Sex: Female

DRUGS (4)
  1. INTRAUTERINE COPPER CONTRACEPTIVE [Suspect]
     Indication: CONTRACEPTION
     Dosage: INTRA-UTERINE
     Route: 015
     Dates: start: 20050221, end: 20050630
  2. INTRAUTERINE COPPER CONTRACEPTIVE [Suspect]
     Indication: CONTRACEPTION
     Dosage: INTRA-UTERINE
     Route: 015
     Dates: start: 20050815
  3. RHINOCORT (BUDESONIDE) (NASAL DROPS (INCLUDING NASAL SPRAY) [Concomitant]
  4. BENADRYL [Concomitant]

REACTIONS (10)
  - ABDOMINAL DISCOMFORT [None]
  - ABDOMINAL DISTENSION [None]
  - CONSTIPATION [None]
  - DYSMENORRHOEA [None]
  - DYSPAREUNIA [None]
  - FLATULENCE [None]
  - INTRA-UTERINE CONTRACEPTIVE DEVICE EXPELLED [None]
  - IUCD COMPLICATION [None]
  - LIBIDO DECREASED [None]
  - OVULATION PAIN [None]
